FAERS Safety Report 4321149-8 (Version None)
Quarter: 2004Q1

REPORT INFORMATION
  Report Type: 
  Country: None (occurrence: None)
  Receive Date: 20040315
  Receipt Date: 20031003
  Transmission Date: 20041129
  Serious: Yes (Other)
  Sender: FDA-Public Use
  Company Number: PHEH2003US08931

PATIENT
  Age: 76 Year
  Sex: Male

DRUGS (5)
  1. TRILEPTAL [Suspect]
     Indication: CONVULSION
     Dosage: 300 MG, BID, ORAL; 300 MG, QD, ORAL
     Route: 048
     Dates: start: 20010101, end: 20030101
  2. ATACAND [Concomitant]
  3. HYDROCHLOROTHIAZIDE [Concomitant]
  4. COREG [Concomitant]
  5. COUMADIN [Concomitant]

REACTIONS (4)
  - BLOOD SODIUM DECREASED [None]
  - CONFUSIONAL STATE [None]
  - GAIT DISTURBANCE [None]
  - URINE OUTPUT INCREASED [None]
